FAERS Safety Report 8514907-7 (Version None)
Quarter: 2012Q3

REPORT INFORMATION
  Report Type: 
  Country: None (occurrence: None)
  Receive Date: 20120717
  Receipt Date: 20120703
  Transmission Date: 20120928
  Serious: Yes (Hospitalization)
  Sender: FDA-Public Use
  Company Number: JP-ROCHE-773669

PATIENT
  Sex: Female

DRUGS (26)
  1. PREDNISOLONE [Concomitant]
     Dosage: DOSE FORM: PERORAL AGENT
     Route: 048
     Dates: start: 20110330, end: 20110404
  2. PREDNISOLONE [Concomitant]
     Dosage: DOSE FORM: PERORAL AGENT
     Route: 048
     Dates: start: 20110412, end: 20110418
  3. PREDNISOLONE [Concomitant]
     Dosage: DOSE FORM: PERORAL AGENT
     Route: 048
  4. LATANOPROST [Concomitant]
     Dosage: DOSAGE UNCERTAIN
     Route: 047
  5. FAMOTIDINE [Concomitant]
     Dosage: DOSE FORM: PERORAL AGENT
     Route: 048
  6. ACTEMRA [Suspect]
     Route: 041
     Dates: start: 20110411, end: 20110418
  7. DEXAMETHASONE [Concomitant]
     Indication: JUVENILE ARTHRITIS
     Route: 041
     Dates: start: 20110109, end: 20110203
  8. PREDNISOLONE [Concomitant]
     Dosage: DOSE FORM: PERORAL AGENT
     Route: 048
     Dates: start: 20110405, end: 20110411
  9. DIPIVEFRIN HCL [Concomitant]
     Dosage: DOSAGE UNCERTAIN
     Route: 047
  10. ACTONEL [Concomitant]
     Route: 048
  11. ACTEMRA [Suspect]
     Route: 041
     Dates: start: 20110204, end: 20110204
  12. ACTEMRA [Suspect]
     Route: 041
     Dates: start: 20110210, end: 20110404
  13. PREDNISOLONE [Concomitant]
     Indication: JUVENILE ARTHRITIS
     Dosage: DOSE FORM: PERORAL AGENT
     Route: 048
     Dates: start: 20110301, end: 20110316
  14. POTASSIUM GLUCONATE TAB [Concomitant]
     Dosage: DOSE FORM: PERORAL AGENT
     Route: 048
  15. DEXAMETHASONE [Concomitant]
     Route: 041
     Dates: start: 20110204, end: 20110228
  16. PREDNISOLONE [Concomitant]
     Dosage: DOSE FORM: PERORAL AGENT
     Route: 048
     Dates: start: 20110317, end: 20110325
  17. ONEALFA [Concomitant]
     Dosage: DOSE FORM: PERORAL AGENT
     Route: 048
  18. DIAMOX [Concomitant]
     Dosage: DOSE FORM: PERORAL AGENT
     Route: 050
  19. IBRUPROFEN [Concomitant]
     Dosage: DOSE FORM: PERORAL AGENT
     Route: 048
  20. MIYA BM [Concomitant]
     Dosage: DOSE FORM: PERORAL AGENT
     Route: 048
  21. POLARAMINE [Concomitant]
     Route: 048
     Dates: start: 20110216, end: 20110219
  22. FERROUS CITRATE [Concomitant]
     Dosage: DOSE FORM: PERORAL AGENT
     Route: 048
  23. ACTEMRA [Suspect]
     Indication: JUVENILE ARTHRITIS
     Route: 041
     Dates: start: 20110121, end: 20110128
  24. PREDNISOLONE [Concomitant]
     Dosage: DOSE FORM: PERORAL AGENT
     Route: 048
     Dates: start: 20110326, end: 20110329
  25. CARTEOLOL HYDROCHLORIDE [Concomitant]
     Dosage: DOSAGE UNCERTAIN
     Route: 047
  26. TRUSOPT [Concomitant]
     Dosage: DOSAGE UNCERTAIN
     Route: 047

REACTIONS (2)
  - INFUSION RELATED REACTION [None]
  - C-REACTIVE PROTEIN INCREASED [None]
